FAERS Safety Report 25902155 (Version 1)
Quarter: 2025Q4

REPORT INFORMATION
  Report Type: Spontaneous
  Country: TR (occurrence: TR)
  Receive Date: 20251009
  Receipt Date: 20251009
  Transmission Date: 20260118
  Serious: Yes (Other)
  Sender: NOVARTIS
  Company Number: TR-002147023-NVSC2025TR153096

PATIENT
  Age: 63 Year
  Sex: Male

DRUGS (9)
  1. CYCLOSPORINE [Suspect]
     Active Substance: CYCLOSPORINE
     Indication: Choroiditis
     Dosage: UNK
     Route: 065
  2. ISONIAZID [Concomitant]
     Active Substance: ISONIAZID
     Indication: Meningitis tuberculous
     Dosage: 5 MG/KG FOR THE FIRST 3-4 MONTHS
     Route: 065
  3. ISONIAZID [Concomitant]
     Active Substance: ISONIAZID
     Dosage: 5 MG/KG FOR 9 MONTHS
     Route: 065
  4. RIFAMPIN [Concomitant]
     Active Substance: RIFAMPIN
     Indication: Meningitis tuberculous
     Dosage: 10 MG/KG FOR THE FIRST 3-4 MONTHS
     Route: 065
  5. RIFAMPIN [Concomitant]
     Active Substance: RIFAMPIN
     Dosage: 10 MG/KG FOR 9 MONTHS
     Route: 065
  6. ETHAMBUTOL [Concomitant]
     Active Substance: ETHAMBUTOL HYDROCHLORIDE
     Indication: Meningitis tuberculous
     Dosage: 15 MG/KG FOR THE FIRST 3-4 MONTHS
     Route: 065
  7. PYRAZINAMIDE [Concomitant]
     Active Substance: PYRAZINAMIDE
     Indication: Meningitis tuberculous
     Dosage: 25 MG/KG FOR THE FIRST 3-4 MONTHS
     Route: 065
  8. ADALIMUMAB [Concomitant]
     Active Substance: ADALIMUMAB
     Indication: Serpiginous choroiditis
     Dosage: 80 MG, Q2W, LOADING DOSE
     Route: 058
  9. ADALIMUMAB [Concomitant]
     Active Substance: ADALIMUMAB
     Dosage: 40 MG, Q2W, MAINTENANCE DOSE
     Route: 058

REACTIONS (2)
  - Renal failure [Unknown]
  - Off label use [Unknown]
